FAERS Safety Report 8308568-X (Version None)
Quarter: 2012Q2

REPORT INFORMATION
  Report Type: 
  Country: None (occurrence: None)
  Receive Date: 20120419
  Receipt Date: 20120409
  Transmission Date: 20120825
  Serious: Yes (Other)
  Sender: FDA-Public Use
  Company Number: JP-2012-14707

PATIENT
  Age: 56 Year

DRUGS (4)
  1. EPADEL (EICOSAPENTAENOIC ACID) [Concomitant]
  2. PLETAL [Suspect]
     Dosage: ORAL
     Route: 048
  3. PLAVIX [Concomitant]
  4. OPALMON (LIMPAORST) [Concomitant]

REACTIONS (1)
  - PNEUMONIA [None]
